FAERS Safety Report 13949270 (Version 1)
Quarter: 2017Q3

REPORT INFORMATION
  Report Type: Spontaneous
  Country: US (occurrence: US)
  Receive Date: 20170908
  Receipt Date: 20170908
  Transmission Date: 20171128
  Serious: No
  Sender: FDA-Public Use
  Company Number: US-ROCHE-1132398

PATIENT
  Sex: Male

DRUGS (4)
  1. RITUXAN [Suspect]
     Active Substance: RITUXIMAB
     Indication: OFF LABEL USE
  2. PROCRIT [Concomitant]
     Active Substance: ERYTHROPOIETIN
  3. RITUXAN [Suspect]
     Active Substance: RITUXIMAB
     Indication: PLASMA CELL MYELOMA
     Route: 065
     Dates: start: 20020121
  4. ETHYOL [Concomitant]
     Active Substance: AMIFOSTINE

REACTIONS (2)
  - Back pain [Unknown]
  - Infusion related reaction [Unknown]
